FAERS Safety Report 5987161-8 (Version None)
Quarter: 2008Q4

REPORT INFORMATION
  Report Type: 
  Country: None (occurrence: None)
  Receive Date: 20081209
  Receipt Date: 20081127
  Transmission Date: 20090506
  Serious: Yes (Other)
  Sender: FDA-Public Use
  Company Number: GB-PFIZER INC-2008101189

PATIENT

DRUGS (7)
  1. CHAMPIX [Suspect]
     Indication: SMOKING CESSATION THERAPY
     Route: 048
     Dates: start: 20080905, end: 20081104
  2. ACETYLSALICYLIC ACID SRT [Concomitant]
     Route: 048
     Dates: start: 20040108
  3. ATORVASTATIN CALCIUM [Concomitant]
     Route: 048
     Dates: start: 20040806
  4. CITALOPRAM HYDROBROMIDE [Concomitant]
     Route: 048
  5. ALBUTEROL SULFATE [Concomitant]
     Route: 055
  6. SERETIDE [Concomitant]
     Route: 055
  7. SPIRIVA [Concomitant]
     Route: 055

REACTIONS (3)
  - DEPRESSION [None]
  - NAUSEA [None]
  - PANIC ATTACK [None]
